FAERS Safety Report 7403981-7 (Version None)
Quarter: 2011Q1

REPORT INFORMATION
  Report Type: 
  Country: None (occurrence: None)
  Receive Date: 20110331
  Receipt Date: 20110321
  Transmission Date: 20110831
  Serious: Yes (Hospitalization)
  Sender: FDA-Public Use
  Company Number: 868640

PATIENT
  Age: 38 Year
  Sex: Female

DRUGS (2)
  1. BUPIVACAINE HYDROCHLORIDE [Suspect]
     Indication: GASTROINTESTINAL PAIN
     Dosage: 5.3 MG/D INCREASED TO FINAL MAXIMUM OF 9.0 MG/D
     Route: 039
  2. MORPHINE SULFATE [Suspect]
     Indication: GASTROINTESTINAL PAIN
     Dosage: 10.5 MG/D INCREASED TO FINAL MAXIMUM OF 15.0MG/D, INTRATHECAL
     Route: 037

REACTIONS (5)
  - DEVICE BREAKAGE [None]
  - GRANULOMA [None]
  - DEVICE MALFUNCTION [None]
  - DEVICE LEAKAGE [None]
  - DRUG EFFECT DECREASED [None]
